FAERS Safety Report 18724422 (Version 1)
Quarter: 2021Q1

REPORT INFORMATION
  Report Type: Spontaneous
  Country: US (occurrence: US)
  Receive Date: 20210110
  Receipt Date: 20210110
  Transmission Date: 20210419
  Serious: No
  Sender: FDA-Public Use
  Company Number: None

PATIENT
  Age: 7 Year
  Sex: Female
  Weight: 22.5 kg

DRUGS (2)
  1. MIRALAX [Suspect]
     Active Substance: POLYETHYLENE GLYCOL 3350
     Indication: CONSTIPATION
     Route: 048
     Dates: start: 20201024, end: 20201124
  2. CHILDRENS MULTIVITAMIN [Concomitant]

REACTIONS (9)
  - Off label use [None]
  - Aggression [None]
  - Abdominal pain upper [None]
  - Emotional disorder [None]
  - Screaming [None]
  - Fight in school [None]
  - Abnormal behaviour [None]
  - Crying [None]
  - Anger [None]

NARRATIVE: CASE EVENT DATE: 20201025
